FAERS Safety Report 8887361 (Version 1)
Quarter: 2012Q4

REPORT INFORMATION
  Report Type: Spontaneous
  Country: US (occurrence: None)
  Receive Date: 20121101
  Receipt Date: 20121101
  Transmission Date: 20130627
  Serious: Yes (Life-Threatening, Hospitalization)
  Sender: FDA-Public Use
  Company Number: None

PATIENT
  Age: 57 Year
  Sex: Female
  Weight: 94.8 kg

DRUGS (2)
  1. VANCOMYCIN [Suspect]
     Indication: CELLULITIS OF FACE
     Dosage: 1000 mg Daily IV Drip
     Route: 041
  2. NALBUPHINE [Suspect]
     Dosage: 5 mg Q4H IV bolus
     Route: 040

REACTIONS (6)
  - Feeling abnormal [None]
  - Chills [None]
  - Tremor [None]
  - Respiratory distress [None]
  - Pyrexia [None]
  - Pain in extremity [None]
